FAERS Safety Report 25638979 (Version 1)
Quarter: 2025Q3

REPORT INFORMATION
  Report Type: Report from Study
  Country: US (occurrence: US)
  Receive Date: 20250804
  Receipt Date: 20250804
  Transmission Date: 20251021
  Serious: No
  Sender: AURINIA PHARMACEUTICALS
  Company Number: US-AURINIA PHARMACEUTICALS INC.-AUR-007838

PATIENT
  Sex: Female

DRUGS (2)
  1. LUPKYNIS [Suspect]
     Active Substance: VOCLOSPORIN
     Indication: Lupus nephritis
     Dosage: 23.7 MILLIGRAM, BID
     Route: 048
     Dates: start: 202411
  2. LUPKYNIS [Suspect]
     Active Substance: VOCLOSPORIN

REACTIONS (4)
  - Influenza like illness [Unknown]
  - Headache [Recovered/Resolved]
  - Alopecia [Unknown]
  - Product storage error [Unknown]
